FAERS Safety Report 10734105 (Version 2)
Quarter: 2015Q2

REPORT INFORMATION
  Report Type: Spontaneous
  Country: US (occurrence: US)
  Receive Date: 20150123
  Receipt Date: 20150407
  Transmission Date: 20150821
  Serious: Yes (Hospitalization, Other)
  Sender: FDA-Public Use
  Company Number: US-GLAXOSMITHKLINE-US2015005410

PATIENT
  Sex: Male
  Weight: 114.74 kg

DRUGS (9)
  1. MEKINIST [Suspect]
     Active Substance: TRAMETINIB DIMETHYL SULFOXIDE
     Indication: MALIGNANT MELANOMA
     Dosage: 2 MG, QD
     Route: 048
     Dates: start: 201411, end: 201412
  2. OXYCONTIN [Concomitant]
     Active Substance: OXYCODONE HYDROCHLORIDE
  3. MEKINIST [Suspect]
     Active Substance: TRAMETINIB DIMETHYL SULFOXIDE
     Dosage: 1.5 MG, QD
  4. POTASSIUM [Concomitant]
     Active Substance: POTASSIUM
  5. TAFINLAR [Suspect]
     Active Substance: DABRAFENIB MESYLATE
     Indication: MALIGNANT MELANOMA
     Dosage: 150 MG, BID
     Route: 048
     Dates: start: 20140926, end: 201412
  6. HYDROCODONE [Concomitant]
     Active Substance: HYDROCODONE
  7. LASIX [Concomitant]
     Active Substance: FUROSEMIDE
  8. TAFINLAR [Suspect]
     Active Substance: DABRAFENIB MESYLATE
     Dosage: 100 MG, BID
     Route: 048
     Dates: start: 201409
  9. CELEXA [Concomitant]
     Active Substance: CITALOPRAM HYDROBROMIDE

REACTIONS (4)
  - Sluggishness [Recovering/Resolving]
  - Ill-defined disorder [Recovering/Resolving]
  - Depressed mood [Recovering/Resolving]
  - Depressed level of consciousness [Recovering/Resolving]
